FAERS Safety Report 8701941 (Version 8)
Quarter: 2012Q4

REPORT INFORMATION
  Report Type: Report from Study
  Country: JP (occurrence: JP)
  Receive Date: 20120803
  Receipt Date: 20120918
  Transmission Date: 20130627
  Serious: Yes (Death, Hospitalization, Disabling)
  Sender: FDA-Public Use
  Company Number: JP-JNJFOC-20120714905

PATIENT
  Age: 79 Year
  Sex: Female
  Weight: 40 kg

DRUGS (81)
  1. SIMPONI [Suspect]
     Indication: RHEUMATOID ARTHRITIS
     Route: 058
     Dates: start: 20120321
  2. SIMPONI [Suspect]
     Indication: RHEUMATOID ARTHRITIS
     Route: 058
     Dates: start: 20120516
  3. SIMPONI [Suspect]
     Indication: RHEUMATOID ARTHRITIS
     Route: 058
     Dates: start: 20120418
  4. SIMPONI [Suspect]
     Indication: RHEUMATOID ARTHRITIS
     Route: 058
     Dates: start: 20120615
  5. SIMPONI [Suspect]
     Indication: RHEUMATOID ARTHRITIS
     Route: 058
     Dates: start: 20120222
  6. SIMPONI [Suspect]
     Indication: RHEUMATOID ARTHRITIS
     Route: 058
     Dates: end: 20120629
  7. METHOTREXATE [Concomitant]
     Indication: RHEUMATOID ARTHRITIS
     Dates: start: 20100216
  8. BREDININ [Concomitant]
     Indication: RHEUMATOID ARTHRITIS
     Route: 048
     Dates: start: 20090811
  9. ULCERLMIN [Concomitant]
     Route: 048
     Dates: start: 20120216, end: 20120701
  10. CRAVIT [Concomitant]
     Route: 048
     Dates: start: 20120622, end: 20120625
  11. SLOW-K [Concomitant]
     Route: 048
     Dates: start: 20120620, end: 20120627
  12. CELECOX [Concomitant]
     Route: 048
     Dates: start: 20120621, end: 20120701
  13. TAKEPRON [Concomitant]
     Route: 048
     Dates: start: 20120216, end: 20120701
  14. PANTOSIN [Concomitant]
     Route: 048
     Dates: start: 20120624, end: 20120724
  15. BIO-THREE [Concomitant]
     Route: 048
     Dates: start: 20120622, end: 20120727
  16. PREDONINE [Concomitant]
     Route: 048
     Dates: start: 20120621, end: 20120701
  17. FUROSEMIDE [Concomitant]
     Route: 048
     Dates: start: 20120620, end: 20120627
  18. MAINTATE [Concomitant]
     Route: 048
     Dates: start: 20120511, end: 20120701
  19. RHYTHMY [Concomitant]
     Route: 048
     Dates: start: 20120623, end: 20120623
  20. REBAMIPIDE [Concomitant]
     Route: 048
     Dates: start: 20120516, end: 20120701
  21. WARFARIN [Concomitant]
     Route: 048
     Dates: start: 20120620, end: 20120624
  22. VASOLAN [Concomitant]
     Route: 048
     Dates: start: 20120618, end: 20120618
  23. VASOLAN [Concomitant]
     Route: 048
     Dates: start: 20120620, end: 20120627
  24. LOXONIN [Concomitant]
     Route: 062
     Dates: start: 20120216, end: 20120625
  25. LEVEMIR [Concomitant]
     Route: 058
     Dates: start: 20120628, end: 20120628
  26. UNKNOWN MEDICATION [Concomitant]
     Route: 041
     Dates: start: 20120701, end: 20120712
  27. ELASPOL [Concomitant]
     Route: 041
     Dates: start: 20120701, end: 20120710
  28. GLUCOSE [Concomitant]
     Route: 041
     Dates: start: 20120704, end: 20120705
  29. GLUCOSE [Concomitant]
     Route: 041
     Dates: start: 20120706, end: 20120710
  30. GLUCOSE [Concomitant]
     Route: 041
     Dates: start: 20120711, end: 20120711
  31. GLUCOSE [Concomitant]
     Route: 041
     Dates: start: 20120703, end: 20120703
  32. GLUCOSE [Concomitant]
     Route: 041
     Dates: start: 20120701, end: 20120702
  33. FULCALIQ [Concomitant]
     Route: 041
     Dates: start: 20120701, end: 20120703
  34. PREDONINE [Concomitant]
     Route: 041
     Dates: start: 20120701, end: 20120702
  35. PREDONINE [Concomitant]
     Route: 041
     Dates: start: 20120703, end: 20120712
  36. FUROSEMIDE [Concomitant]
     Route: 041
     Dates: start: 20120701, end: 20120701
  37. FUROSEMIDE [Concomitant]
     Route: 041
     Dates: start: 20120703, end: 20120703
  38. PROPOFOL [Concomitant]
     Route: 041
     Dates: start: 20120709, end: 20120709
  39. PROPOFOL [Concomitant]
     Route: 041
     Dates: start: 20120710, end: 20120712
  40. PROPOFOL [Concomitant]
     Route: 041
     Dates: start: 20120702, end: 20120708
  41. HEPARIN SODIUM [Concomitant]
     Route: 041
     Dates: start: 20120703, end: 20120712
  42. HERBESSER [Concomitant]
     Route: 041
     Dates: start: 20120705, end: 20120712
  43. MANNITOL [Concomitant]
     Route: 041
     Dates: start: 20120703, end: 20120712
  44. MEROPENEM HYDRATE [Concomitant]
     Route: 041
     Dates: start: 20120702, end: 20120707
  45. ACETATED RINGER [Concomitant]
     Route: 041
     Dates: start: 20120701, end: 20120708
  46. SOLU MEDROL [Concomitant]
     Route: 041
     Dates: start: 20120701, end: 20120702
  47. SOLULACT [Concomitant]
     Route: 041
     Dates: start: 20120701, end: 20120711
  48. SEISHOKU [Concomitant]
     Route: 041
     Dates: start: 20120710, end: 20120710
  49. SEISHOKU [Concomitant]
     Route: 041
     Dates: start: 20120711, end: 20120711
  50. SEISHOKU [Concomitant]
     Route: 041
     Dates: start: 20120712, end: 20120712
  51. SEISHOKU [Concomitant]
     Route: 041
     Dates: start: 20120701, end: 20120707
  52. OMEPRAL [Concomitant]
     Route: 041
     Dates: start: 20120701, end: 20120712
  53. ISOTONIC SODIUM CHLORIDE SOLUTION [Concomitant]
     Route: 041
     Dates: start: 20120705, end: 20120712
  54. ISOTONIC SODIUM CHLORIDE SOLUTION [Concomitant]
     Route: 041
     Dates: start: 20120710, end: 20120710
  55. ISOTONIC SODIUM CHLORIDE SOLUTION [Concomitant]
     Route: 041
     Dates: start: 20120708, end: 20120709
  56. ISOTONIC SODIUM CHLORIDE SOLUTION [Concomitant]
     Route: 041
     Dates: start: 20120711, end: 20120712
  57. ISOTONIC SODIUM CHLORIDE SOLUTION [Concomitant]
     Route: 041
     Dates: start: 20120701, end: 20120702
  58. ISOTONIC SODIUM CHLORIDE SOLUTION [Concomitant]
     Route: 041
     Dates: start: 20120701, end: 20120712
  59. HUMAN SERUM ALBUMIN [Concomitant]
     Route: 041
     Dates: start: 20120702, end: 20120704
  60. HUMAN SERUM ALBUMIN [Concomitant]
     Route: 041
     Dates: start: 20120709, end: 20120711
  61. POTASSIUM CHLORIDE [Concomitant]
     Route: 041
     Dates: start: 20120706, end: 20120707
  62. DIGOXIN [Concomitant]
     Route: 041
     Dates: start: 20120705, end: 20120710
  63. MODACIN [Concomitant]
     Route: 041
     Dates: start: 20120708, end: 20120710
  64. SOLDEM 3A [Concomitant]
     Route: 041
     Dates: start: 20120705, end: 20120705
  65. DALACIN-S [Concomitant]
     Route: 041
     Dates: start: 20120708, end: 20120709
  66. DALACIN-S [Concomitant]
     Route: 041
     Dates: start: 20120710, end: 20120710
  67. LASIX [Concomitant]
     Route: 041
     Dates: start: 20120703, end: 20120710
  68. LASIX [Concomitant]
     Route: 041
     Dates: start: 20120711, end: 20120712
  69. VASOLAN [Concomitant]
     Route: 041
     Dates: start: 20120702, end: 20120703
  70. VASOLAN [Concomitant]
     Route: 041
     Dates: start: 20120704, end: 20120705
  71. OMEGACIN [Concomitant]
     Route: 041
     Dates: start: 20120712, end: 20120712
  72. OMEGACIN [Concomitant]
     Route: 041
     Dates: start: 20120711, end: 20120711
  73. OMEGACIN [Concomitant]
     Route: 041
     Dates: start: 20120710, end: 20120710
  74. FULCALIQ [Concomitant]
     Route: 041
     Dates: start: 20120703, end: 20120712
  75. EPLERENONE [Concomitant]
     Route: 048
     Dates: start: 20120619, end: 20120627
  76. DALACIN-S [Concomitant]
     Route: 041
     Dates: start: 20120710, end: 20120710
  77. DALACIN-S [Concomitant]
     Route: 041
     Dates: start: 20120708, end: 20120709
  78. MAGMITT [Concomitant]
     Route: 048
     Dates: start: 20120218
  79. KETOPROFEN [Concomitant]
     Route: 061
     Dates: start: 20120216, end: 20120523
  80. PIRENOXINE [Concomitant]
     Route: 047
     Dates: start: 20120216, end: 20120523
  81. FENAZOL [Concomitant]
     Route: 061
     Dates: start: 20120418, end: 20120523

REACTIONS (10)
  - Pneumothorax [Fatal]
  - Pneumonia [Fatal]
  - Cardiac failure congestive [Not Recovered/Not Resolved]
  - Arrhythmia [Not Recovered/Not Resolved]
  - Sepsis [Fatal]
  - Pneumonia aspiration [Fatal]
  - Endocarditis [Unknown]
  - Atrial fibrillation [Not Recovered/Not Resolved]
  - Malnutrition [Not Recovered/Not Resolved]
  - Fall [Recovering/Resolving]
